FAERS Safety Report 11588119 (Version 1)
Quarter: 2015Q4

REPORT INFORMATION
  Report Type: Report from Study
  Country: US (occurrence: US)
  Receive Date: 20151002
  Receipt Date: 20151002
  Transmission Date: 20160304
  Serious: No
  Sender: FDA-Public Use
  Company Number: PHEH2015US019167

PATIENT
  Sex: Female

DRUGS (1)
  1. EXTAVIA [Suspect]
     Active Substance: INTERFERON BETA-1B
     Indication: MULTIPLE SCLEROSIS
     Dosage: WEEK1-2:0.0625MG(0.25 ML), WEEK3-4:0.125MG(0.5 ML),WEEK5-6:0.1875MG(0.75 ML),WEEK7+:0.25MG(1ML) QOD
     Route: 058

REACTIONS (2)
  - Pain [Unknown]
  - Injection site discolouration [Recovered/Resolved]
